FAERS Safety Report 16547018 (Version 2)
Quarter: 2019Q4

REPORT INFORMATION
  Report Type: Report from Study
  Country: AT (occurrence: AT)
  Receive Date: 20190709
  Receipt Date: 20191125
  Transmission Date: 20200122
  Serious: Yes (Hospitalization)
  Sender: FDA-Public Use
  Company Number: AT-PFIZER INC-2019197120

PATIENT
  Age: 78 Year
  Sex: Female
  Weight: 54 kg

DRUGS (8)
  1. AZACITIDINE. [Suspect]
     Active Substance: AZACITIDINE
     Indication: ACUTE MYELOID LEUKAEMIA
     Dosage: 120 MG, DAILY FOR 7 DAYS
     Route: 058
     Dates: start: 20190227
  2. OLEOVIT [RETINOL] [Concomitant]
     Indication: OSTEOPOROSIS
     Dosage: 30 GTT, WEEKLY
     Route: 048
  3. NOXAFIL [Concomitant]
     Active Substance: POSACONAZOLE
     Indication: INFECTION PROPHYLAXIS
     Dosage: 300 MG, 1X/DAY
     Route: 048
     Dates: start: 201904
  4. OMEC [Concomitant]
     Active Substance: OMEPRAZOLE
     Indication: PROPHYLAXIS
     Dosage: 20 MG, 1X/DAY
     Route: 048
  5. GLASDEGIB [Suspect]
     Active Substance: GLASDEGIB
     Indication: ACUTE MYELOID LEUKAEMIA
     Dosage: ONCE DAILY, CONTINUOUS
     Route: 048
     Dates: start: 20190227, end: 20190506
  6. FOSITENS [Concomitant]
     Active Substance: FOSINOPRIL SODIUM
     Indication: HYPERTENSION
     Dosage: 20 MG, AS NEEDED
     Route: 048
  7. GABATAL [Concomitant]
     Indication: PAIN
     Dosage: 300 MG, 1X/DAY
     Route: 048
  8. AMPHO-MORONAL [Concomitant]
     Active Substance: AMPHOTERICIN B
     Dosage: 1 TABLESPOON, 4X.DAY
     Route: 048
     Dates: start: 201902

REACTIONS (2)
  - Enterobacter infection [Recovered/Resolved]
  - Febrile neutropenia [Recovered/Resolved]

NARRATIVE: CASE EVENT DATE: 20190507
